FAERS Safety Report 9243361 (Version 1)
Quarter: 2013Q2

REPORT INFORMATION
  Report Type: Spontaneous
  Country: FR (occurrence: FR)
  Receive Date: 20130420
  Receipt Date: 20130420
  Transmission Date: 20140414
  Serious: Yes (Other)
  Sender: FDA-Public Use
  Company Number: FR-B.I. PHARMACEUTICALS,INC./RIDGEFIELD-2013-FF-01117FF

PATIENT
  Age: 80 Year
  Sex: Female
  Weight: 54 kg

DRUGS (5)
  1. PRADAXA [Suspect]
     Indication: ATRIAL FIBRILLATION
     Dosage: 220 MG
     Route: 048
  2. LOXEN [Concomitant]
     Dosage: 20 MG
  3. CORDARONE [Concomitant]
     Dosage: 200 MG
  4. PROPRANOLOL [Concomitant]
     Dosage: 40 MG
  5. VASTEN [Concomitant]
     Dosage: 10 MG

REACTIONS (3)
  - Musculoskeletal disorder [Not Recovered/Not Resolved]
  - Walking distance test abnormal [Not Recovered/Not Resolved]
  - Pain in extremity [Not Recovered/Not Resolved]
